FAERS Safety Report 8781062 (Version 1)
Quarter: 2012Q4

REPORT INFORMATION
  Report Type: 
  Country: US (occurrence: US)
  Receive Date: 20120913
  Receipt Date: 20120913
  Transmission Date: 20130627
  Serious: No
  Sender: FDA-Public Use
  Company Number: US-009507513-1209USA000821

PATIENT

DRUGS (4)
  1. NUVARING [Suspect]
     Indication: CONTRACEPTION
     Dosage: UNK
     Route: 067
     Dates: start: 2010
  2. NUVARING [Suspect]
     Indication: POLYCYSTIC OVARIES
  3. LEXAPRO [Concomitant]
  4. ZYRTEC [Concomitant]

REACTIONS (2)
  - Menstruation delayed [Unknown]
  - Inappropriate schedule of drug administration [Recovered/Resolved]
